FAERS Safety Report 22996787 (Version 2)
Quarter: 2023Q4

REPORT INFORMATION
  Report Type: Spontaneous
  Country: US (occurrence: US)
  Receive Date: 20230928
  Receipt Date: 20231005
  Transmission Date: 20240110
  Serious: No
  Sender: FDA-Public Use
  Company Number: US-ABBVIE-5425725

PATIENT
  Age: 54 Year
  Sex: Male

DRUGS (1)
  1. HUMIRA [Suspect]
     Active Substance: ADALIMUMAB
     Indication: Product used for unknown indication
     Dosage: UNKNOWN
     Route: 058

REACTIONS (4)
  - Injection site bruising [Unknown]
  - Injection site erythema [Unknown]
  - Injection site mass [Unknown]
  - Injection site pruritus [Unknown]

NARRATIVE: CASE EVENT DATE: 20230926
